FAERS Safety Report 7570261-9 (Version None)
Quarter: 2011Q2

REPORT INFORMATION
  Report Type: 
  Country: None (occurrence: None)
  Receive Date: 20110622
  Receipt Date: 20110622
  Transmission Date: 20111010
  Serious: Yes (Other)
  Sender: FDA-Public Use
  Company Number: None

PATIENT
  Sex: Female
  Weight: 58.0604 kg

DRUGS (1)
  1. LETROZOLE [Suspect]
     Indication: BREAST CANCER
     Dosage: 2.5MG 1 DAILY ORAL
     Route: 048
     Dates: start: 20110520, end: 20110606

REACTIONS (2)
  - RASH [None]
  - URTICARIA [None]
